FAERS Safety Report 4388143-2 (Version None)
Quarter: 2004Q2

REPORT INFORMATION
  Report Type: 
  Country: None (occurrence: None)
  Receive Date: 20040625
  Receipt Date: 20040615
  Transmission Date: 20050107
  Serious: Yes (Hospitalization)
  Sender: FDA-Public Use
  Company Number: 2004CG00540

PATIENT
  Age: 26 Day
  Sex: Male

DRUGS (4)
  1. AVLOCARDYL [Suspect]
     Dosage: 2 MG/KG DAILY PO
     Route: 048
     Dates: start: 20040121, end: 20040211
  2. TENORMIN [Suspect]
     Dosage: 25 MG BID TPL
     Route: 061
  3. NEO-MERCAZOLE TAB [Suspect]
     Dosage: 1MG Q8H PO
     Route: 048
     Dates: start: 20040121, end: 20040211
  4. PROPYLTHIOURACILE [Suspect]
     Dates: start: 20040121, end: 20040211

REACTIONS (15)
  - BLOOD ALKALINE PHOSPHATASE INCREASED [None]
  - BREECH PRESENTATION [None]
  - CAESAREAN SECTION [None]
  - CONGENITAL NOSE MALFORMATION [None]
  - DRUG EXPOSURE DURING PREGNANCY [None]
  - FACTOR II DEFICIENCY [None]
  - FALLOT'S TETRALOGY [None]
  - FOETAL DISTRESS SYNDROME [None]
  - HYPOTHYROIDISM [None]
  - HYPOTONIA NEONATAL [None]
  - NEONATAL DISORDER [None]
  - PREMATURE BABY [None]
  - PROTHROMBIN TIME PROLONGED [None]
  - RECTAL HAEMORRHAGE [None]
  - TALIPES [None]
